FAERS Safety Report 25905953 (Version 4)
Quarter: 2025Q4

REPORT INFORMATION
  Report Type: Spontaneous
  Country: US (occurrence: US)
  Receive Date: 20251010
  Receipt Date: 20251230
  Transmission Date: 20260117
  Serious: Yes (Other)
  Sender: BAYER HEALTHCARE PHARMACEUTICALS INC.
  Company Number: US-BAYER-2025A131646

PATIENT
  Age: 26 Year
  Sex: Male

DRUGS (5)
  1. KOVALTRY [Suspect]
     Active Substance: ANTIHEMOPHILIC FACTOR, HUMAN RECOMBINANT
     Indication: Factor VIII deficiency
     Dosage: KOVALTRY 3000 IU~INFUSED 3000 UNITS EVERY OTHER DAY
     Route: 042
     Dates: start: 202508
  2. KOVALTRY [Suspect]
     Active Substance: ANTIHEMOPHILIC FACTOR, HUMAN RECOMBINANT
     Indication: Prophylaxis
     Dosage: 2 DF, TREATED WITH 2 DOSES WITHIN 3 HOURS
     Route: 042
     Dates: start: 202509
  3. KOVALTRY [Suspect]
     Active Substance: ANTIHEMOPHILIC FACTOR, HUMAN RECOMBINANT
     Indication: Factor VIII deficiency
     Dosage: 2 PROPHY DOSES
     Route: 042
     Dates: start: 202511
  4. KOVALTRY [Suspect]
     Active Substance: ANTIHEMOPHILIC FACTOR, HUMAN RECOMBINANT
     Indication: Factor VIII deficiency
     Dosage: ONE EXTRA
     Route: 042
     Dates: start: 202511
  5. KOVALTRY [Suspect]
     Active Substance: ANTIHEMOPHILIC FACTOR, HUMAN RECOMBINANT
     Indication: Factor VIII deficiency
     Dosage: 1 DF, 1 DOSE OF KOVALTRY TO TREAT
     Route: 042
     Dates: start: 202512

REACTIONS (4)
  - Haemarthrosis [Recovered/Resolved]
  - Haemarthrosis [None]
  - Soft tissue haemorrhage [Recovered/Resolved]
  - Limb injury [Unknown]

NARRATIVE: CASE EVENT DATE: 20250912
